FAERS Safety Report 21862107 (Version 10)
Quarter: 2025Q2

REPORT INFORMATION
  Report Type: Report from Study
  Country: IN (occurrence: None)
  Receive Date: 20230113
  Receipt Date: 20250625
  Transmission Date: 20250717
  Serious: Yes (Other)
  Sender: INCYTE
  Company Number: IN-002147023-PHHY2015IN067098

PATIENT
  Age: 46 Year

DRUGS (9)
  1. RUXOLITINIB [Suspect]
     Active Substance: RUXOLITINIB
     Indication: Primary myelofibrosis
     Dosage: 5 MG, BID
  2. RUXOLITINIB [Suspect]
     Active Substance: RUXOLITINIB
     Indication: Myelofibrosis
     Dosage: 10 MG, BID
  3. RUXOLITINIB [Suspect]
     Active Substance: RUXOLITINIB
     Indication: Polycythaemia vera
     Dosage: 5 MG, BID
  4. RUXOLITINIB [Suspect]
     Active Substance: RUXOLITINIB
     Indication: Graft versus host disease
     Dosage: 5 MG, QD
  5. RUXOLITINIB [Suspect]
     Active Substance: RUXOLITINIB
     Dosage: 5 MG, BID
  6. RUXOLITINIB [Suspect]
     Active Substance: RUXOLITINIB
     Dosage: 5 MG, BID
  7. RUXOLITINIB [Suspect]
     Active Substance: RUXOLITINIB
     Dosage: 5 MG, BID
  8. RUXOLITINIB [Suspect]
     Active Substance: RUXOLITINIB
     Dosage: 5 MG, BID
  9. DANOGEN [Concomitant]
     Indication: Product used for unknown indication
     Route: 065

REACTIONS (18)
  - Abdominal distension [Unknown]
  - Renal disorder [Unknown]
  - Blood lactate dehydrogenase abnormal [Unknown]
  - Back pain [Unknown]
  - Chest discomfort [Unknown]
  - Condition aggravated [Unknown]
  - Myelofibrosis [Unknown]
  - Asthenia [Unknown]
  - Haemangioma [Unknown]
  - Hepatomegaly [Unknown]
  - Blood creatinine increased [Unknown]
  - Leukopenia [Unknown]
  - Haemoglobin decreased [Unknown]
  - Platelet count decreased [Unknown]
  - Blood creatinine abnormal [Unknown]
  - Splenomegaly [Unknown]
  - Product use issue [Unknown]
  - Blood uric acid abnormal [Unknown]
